FAERS Safety Report 21541136 (Version 1)
Quarter: 2022Q4

REPORT INFORMATION
  Report Type: Spontaneous
  Country: US (occurrence: None)
  Receive Date: 20221031
  Receipt Date: 20221031
  Transmission Date: 20230113
  Serious: Yes (Hospitalization)
  Sender: FDA-Public Use
  Company Number: None

PATIENT

DRUGS (1)
  1. RIVAROXABAN [Suspect]
     Active Substance: RIVAROXABAN

REACTIONS (8)
  - Mental status changes [None]
  - Aphasia [None]
  - Eye disorder [None]
  - Acute respiratory failure [None]
  - Subarachnoid haemorrhage [None]
  - Prothrombin time prolonged [None]
  - Haemorrhage [None]
  - Gastrointestinal haemorrhage [None]

NARRATIVE: CASE EVENT DATE: 20220303
